FAERS Safety Report 6500407-2 (Version None)
Quarter: 2009Q4

REPORT INFORMATION
  Report Type: 
  Country: None (occurrence: None)
  Receive Date: 20091216
  Receipt Date: 20091208
  Transmission Date: 20100525
  Serious: Yes (Hospitalization)
  Sender: FDA-Public Use
  Company Number: PHHY2009US54434

PATIENT
  Sex: Male

DRUGS (7)
  1. EXJADE [Suspect]
     Indication: LYMPHATIC DISORDER
     Dosage: 500 MG, BID
     Route: 048
     Dates: start: 20091202
  2. SIMVASTATIN [Concomitant]
  3. PHENAZOPYRIDINE HCL TAB [Concomitant]
  4. PRILOSEC [Concomitant]
  5. EFFEXOR [Concomitant]
  6. AMIODARONE HCL [Concomitant]
  7. FLOMAX [Concomitant]

REACTIONS (4)
  - CHILLS [None]
  - PNEUMONIA [None]
  - PYREXIA [None]
  - VOMITING [None]
